FAERS Safety Report 4702002-4 (Version None)
Quarter: 2005Q2

REPORT INFORMATION
  Report Type: 
  Country: None (occurrence: None)
  Receive Date: 20050627
  Receipt Date: 20050610
  Transmission Date: 20051028
  Serious: Yes (Other)
  Sender: FDA-Public Use
  Company Number: 2005-DE-02217GD

PATIENT
  Sex: 0

DRUGS (1)
  1. LITHIUM CARBONATE [Suspect]
     Dosage: NR

REACTIONS (3)
  - DIALYSIS [None]
  - OVERDOSE [None]
  - RENAL FAILURE ACUTE [None]
